APPROVED DRUG PRODUCT: AMOXIL
Active Ingredient: AMOXICILLIN
Strength: 400MG/5ML **Federal Register determination that product was not discontinued or withdrawn for safety or effectiveness reasons**
Dosage Form/Route: FOR SUSPENSION;ORAL
Application: N050760 | Product #002 | TE Code: AB
Applicant: US ANTIBIOTICS LLC
Approved: Apr 15, 1999 | RLD: Yes | RS: No | Type: RX